FAERS Safety Report 24562760 (Version 1)
Quarter: 2024Q4

REPORT INFORMATION
  Report Type: Spontaneous
  Country: US (occurrence: US)
  Receive Date: 20241029
  Receipt Date: 20241029
  Transmission Date: 20250115
  Serious: Yes (Other)
  Sender: ABBVIE
  Company Number: US-ABBVIE-5981111

PATIENT
  Age: 29 Year
  Sex: Female
  Weight: 88 kg

DRUGS (19)
  1. LILETTA [Suspect]
     Active Substance: LEVONORGESTREL
     Indication: Product used for unknown indication
     Dosage: TIME INTERVAL: AS NECESSARY
     Route: 015
     Dates: start: 20230717
  2. ALBUTEROL SULFATE [Concomitant]
     Active Substance: ALBUTEROL SULFATE
     Indication: Product used for unknown indication
     Dosage: INHALE 1 PUFF EVERY 4 HOURS AS NEEDED AS DIRECTED
     Dates: start: 20240822
  3. BUSPIRONE [Concomitant]
     Active Substance: BUSPIRONE HYDROCHLORIDE
     Indication: Product used for unknown indication
     Dosage: TAKE 1/2 TABLET BY MOUTH TWO TIMES A DAY AS DIRECTED
     Route: 048
     Dates: start: 20240822
  4. BUSPIRONE [Concomitant]
     Active Substance: BUSPIRONE HYDROCHLORIDE
     Indication: Product used for unknown indication
     Dosage: TAKE 1 TABLET 3 TIMES A DAY BY ORAL ROUTE AS NEEDED.
     Route: 048
     Dates: start: 20230523
  5. DICLOFENAC SODIUM [Concomitant]
     Active Substance: DICLOFENAC SODIUM
     Indication: Pain
     Dosage: TAKE 1 TABLET EVERY 8 HOURS
     Route: 048
     Dates: start: 20230913
  6. ESCITALOPRAM [Concomitant]
     Active Substance: ESCITALOPRAM OXALATE
     Indication: Product used for unknown indication
     Dosage: TAKE ONE TABLET BY MOUTH ONCE A DAY
     Route: 048
     Dates: start: 20240318
  7. HYDROCODONE [Concomitant]
     Active Substance: HYDROCODONE
     Indication: Pain
     Dosage: TAKE ONE TABLET BY MOUTH THREE TIMES A DAY AS NEEDED FOR PAIN MAY CAUSE DROWSINESS
     Route: 048
     Dates: start: 20240923
  8. HYDROXYZINE HYDROCHLORIDE [Concomitant]
     Active Substance: HYDROXYZINE HYDROCHLORIDE
     Indication: Anxiety
     Dosage: TAKE 1 TABLET EVERY 6 TO 8 HOURS
     Route: 048
     Dates: start: 20230913
  9. IBUPROFEN [Concomitant]
     Active Substance: IBUPROFEN
     Indication: Product used for unknown indication
     Dosage: TAKE 1 TABLET BY MOUTH TWICE DAILY WITH FOOD
     Route: 048
     Dates: start: 20241011
  10. KETOROLAC [Concomitant]
     Active Substance: KETOROLAC TROMETHAMINE
     Indication: Product used for unknown indication
     Dosage: TAKE 1 TABLET BY MOUTH 4 TIMES DAILY WITH FOOD
     Route: 048
     Dates: start: 20241002
  11. DIPHTHERIA TOXOID NOS [Concomitant]
     Active Substance: CORYNEBACTERIUM DIPHTHERIAE TOXOID ANTIGEN (FORMALDEHYDE INACTIVATED)
     Indication: Product used for unknown indication
     Route: 030
     Dates: start: 20230320
  12. TETANUS TOXOID ADSORBED (VACCINE) [Concomitant]
     Active Substance: CLOSTRIDIUM TETANI TOXOID ANTIGEN (FORMALDEHYDE INACTIVATED)
     Indication: Product used for unknown indication
     Route: 030
     Dates: start: 20211008
  13. LEVOTHYROXINE [Concomitant]
     Active Substance: LEVOTHYROXINE
     Indication: Product used for unknown indication
     Dosage: 50 MCG TAKE ONE TABLET BY MOUTH EVERY MORNING ON AN EMPTY STOMACH AS DIRECTED
     Route: 048
     Dates: start: 20240822
  14. MUPIROCIN [Concomitant]
     Active Substance: MUPIROCIN
     Indication: Product used for unknown indication
     Dosage: 1 APPLICATION EXTERNALLY TWICE A DAY 7 DAYS
     Route: 061
     Dates: start: 20240702
  15. ONDANSETRON [Concomitant]
     Active Substance: ONDANSETRON
     Indication: Nausea
     Dosage: TAKE ONE TABLET BY MOUTH TWO TIMES A DAY AS NEEDED FOR NAUSEA AND VOMITING DISSOLVABLE TABLET
     Route: 048
     Dates: start: 20240923
  16. ONDANSETRON [Concomitant]
     Active Substance: ONDANSETRON
     Indication: Nausea
     Dosage: TAKE ONE TABLET BY MOUTH TWO TIMES A DAY AS NEEDED FOR NAUSEA AND VOMITING DISSOLVABLE TABLET
     Route: 048
     Dates: start: 20240304
  17. PREGABALIN [Concomitant]
     Active Substance: PREGABALIN
     Indication: Product used for unknown indication
     Dosage: TAKE 1 CAPSULE BY MOUTH ONCE A DAY FOR 3 DAYS THEN TAKE 1 CAPSULE TWICE A DAY
     Route: 048
     Dates: start: 20230915
  18. PREGABALIN [Concomitant]
     Active Substance: PREGABALIN
     Indication: Product used for unknown indication
     Dosage: TAKE 1 CAPSULE BY MOUTH ONCE A DAY FOR 3 DAYS THEN TAKE 1 CAPSULE TWICE A DAY
     Route: 048
     Dates: start: 20240918
  19. SERTRALINE [Concomitant]
     Active Substance: SERTRALINE HYDROCHLORIDE
     Indication: Product used for unknown indication
     Dosage: TAKE 2 TABLETS BY MOUTH EVERY DAY
     Route: 048
     Dates: start: 20231203

REACTIONS (3)
  - Heavy menstrual bleeding [Unknown]
  - Device dislocation [Unknown]
  - Complication of device insertion [Unknown]

NARRATIVE: CASE EVENT DATE: 20241014
